FAERS Safety Report 6822755-9 (Version None)
Quarter: 2010Q3

REPORT INFORMATION
  Report Type: 
  Country: None (occurrence: None)
  Receive Date: 20100708
  Receipt Date: 20100701
  Transmission Date: 20110219
  Serious: Yes (Hospitalization)
  Sender: FDA-Public Use
  Company Number: JP-ROCHE-697445

PATIENT
  Age: 64 Year
  Sex: Female
  Weight: 39 kg

DRUGS (19)
  1. ACTEMRA [Suspect]
     Indication: RHEUMATOID ARTHRITIS
     Route: 041
     Dates: start: 20100201, end: 20100331
  2. CLARITH [Suspect]
     Indication: ATYPICAL MYCOBACTERIAL INFECTION
     Route: 048
     Dates: start: 20091223, end: 20100407
  3. RIMACTANE [Suspect]
     Indication: ATYPICAL MYCOBACTERIAL INFECTION
     Route: 048
     Dates: start: 20091223, end: 20100407
  4. ESANBUTOL [Suspect]
     Indication: ATYPICAL MYCOBACTERIAL INFECTION
     Route: 048
     Dates: start: 20091223, end: 20100407
  5. LASIX [Suspect]
     Indication: OEDEMA
     Dosage: FORM: PERORAL AGENT, DOSAGE IS UNCERTAIN.
     Route: 048
     Dates: start: 20100407
  6. KERLONG [Suspect]
     Indication: HYPERTENSION
     Route: 048
  7. MEDROL [Suspect]
     Indication: RHEUMATOID ARTHRITIS
     Route: 048
  8. LANSOPRAZOLE [Suspect]
     Indication: GASTRITIS PROPHYLAXIS
     Dosage: DRUG:LANSOPRAZOLE-OD
     Route: 048
     Dates: end: 20100407
  9. DEPAS [Suspect]
     Indication: INSOMNIA
     Route: 048
  10. LACTULOSE [Suspect]
     Indication: CONSTIPATION
     Route: 048
  11. NIFEDIPINE [Suspect]
     Indication: HYPERTENSION
     Dosage: DRUG:NIFEDIPINE CR, FORM:SUSTAINED-RELEASE TABLET.
     Route: 048
  12. PRECIPITATED CALCIUM CARBONATE [Suspect]
     Indication: BLOOD PHOSPHORUS INCREASED
     Dosage: FORM:POWDERED MEDICINE.
     Route: 048
  13. OLMETEC [Suspect]
     Indication: HYPERTENSION
     Route: 048
  14. CATLEP [Suspect]
     Indication: RHEUMATOID ARTHRITIS
     Dosage: FORM:TAPE, DOSAGE ADJUSTED.
     Route: 062
  15. ALENDRONATE SODIUM [Suspect]
     Indication: OSTEOPOROSIS
     Dosage: DRUG:FOSAMAC 35 MG
     Route: 054
  16. HYALURONATE SODIUM (OPHTHALMIC) [Suspect]
     Indication: CONJUNCTIVITIS
     Dosage: DRUG:HYAL, FORM:EYE DROP.
     Route: 047
  17. PIRENOXINE [Suspect]
     Indication: CONJUNCTIVITIS
     Dosage: FORM:EYE DROP.
     Route: 047
  18. KREMEZIN [Suspect]
     Dosage: FORM:MINUTE GRAIN.
     Route: 048
  19. ALLOPURINOL [Suspect]
     Route: 048

REACTIONS (2)
  - DRUG ERUPTION [None]
  - ERYTHEMA MULTIFORME [None]
